FAERS Safety Report 10739205 (Version 2)
Quarter: 2015Q1

REPORT INFORMATION
  Report Type: Spontaneous
  Country: US (occurrence: US)
  Receive Date: 20150126
  Receipt Date: 20150216
  Transmission Date: 20150721
  Serious: Yes (Death)
  Sender: FDA-Public Use
  Company Number: US-ASTRAZENECA-2015SE05418

PATIENT
  Age: 172 Day
  Sex: Male

DRUGS (6)
  1. D-VI SOL [Concomitant]
     Indication: VITAMIN D
     Dosage: 400 IU/ML, 1 ML DAILY
     Route: 048
  2. AMOXICILLIN. [Concomitant]
     Active Substance: AMOXICILLIN
     Indication: UPPER RESPIRATORY TRACT INFECTION
     Dosage: 125 MG/5 ML, 2.5 ML TWO TIMES A DAY
     Route: 048
     Dates: start: 20141118, end: 20141128
  3. FLUCANOZOLE [Concomitant]
     Indication: CANDIDA INFECTION
     Dosage: 10 MG/ML, 0.9 ML, DAILY
     Route: 048
  4. SYNAGIS [Suspect]
     Active Substance: PALIVIZUMAB
     Indication: ANTIVIRAL PROPHYLAXIS
     Route: 030
     Dates: start: 20141120, end: 20141229
  5. CAFFEINE CITRATE. [Concomitant]
     Active Substance: CAFFEINE CITRATE
     Indication: APNOEA NEONATAL
     Dosage: 20 MG/ML, 1-1.8 ML, DAILY
     Route: 048
  6. MIRALAX [Concomitant]
     Active Substance: POLYETHYLENE GLYCOL 3350
     Indication: CONSTIPATION
     Dosage: 1/4 CAPFULL DAILY, PRN,
     Route: 048
     Dates: start: 20141114

REACTIONS (1)
  - Sudden infant death syndrome [Fatal]

NARRATIVE: CASE EVENT DATE: 20150105
